FAERS Safety Report 19479730 (Version 2)
Quarter: 2021Q3

REPORT INFORMATION
  Report Type: Spontaneous
  Country: JP (occurrence: JP)
  Receive Date: 20210630
  Receipt Date: 20210716
  Transmission Date: 20211014
  Serious: Yes (Death)
  Sender: FDA-Public Use
  Company Number: JP-OTSUKA-2021_018803

PATIENT
  Age: 74 Year
  Sex: Male

DRUGS (4)
  1. IONAL SODIUM [Suspect]
     Active Substance: SECOBARBITAL SODIUM
     Indication: PRODUCT USED FOR UNKNOWN INDICATION
     Dosage: UNK
     Route: 041
  2. SERENACE [Suspect]
     Active Substance: HALOPERIDOL
     Indication: PRODUCT USED FOR UNKNOWN INDICATION
     Dosage: UNK
     Route: 065
  3. ABILIFY MAINTENA [Suspect]
     Active Substance: ARIPIPRAZOLE
     Indication: DELIRIUM
     Dosage: 400 MG, SINGLE
     Route: 030
     Dates: start: 20210601, end: 20210601
  4. MIDAZOLAM. [Suspect]
     Active Substance: MIDAZOLAM
     Indication: PRODUCT USED FOR UNKNOWN INDICATION
     Dosage: UNK
     Route: 041

REACTIONS (5)
  - Emphysema [Fatal]
  - Chronic obstructive pulmonary disease [Fatal]
  - Obstructive airways disorder [Fatal]
  - Off label use [Unknown]
  - Productive cough [Fatal]

NARRATIVE: CASE EVENT DATE: 20210604
